FAERS Safety Report 14067602 (Version 1)
Quarter: 2017Q4

REPORT INFORMATION
  Report Type: Spontaneous
  Country: US (occurrence: US)
  Receive Date: 20171008
  Receipt Date: 20171008
  Transmission Date: 20180321
  Serious: No
  Sender: FDA-Public Use
  Company Number: None

PATIENT
  Age: 47 Year
  Sex: Female
  Weight: 54 kg

DRUGS (6)
  1. SPRINTEC [Concomitant]
     Active Substance: ETHINYL ESTRADIOL\NORGESTIMATE
  2. VITAMIN C [Concomitant]
     Active Substance: ASCORBIC ACID
  3. FLINTSTONES WITH IRON VITAMIN [Concomitant]
  4. SYNTHROID [Suspect]
     Active Substance: LEVOTHYROXINE SODIUM
     Indication: HYPOTHYROIDISM
     Dosage: ?          QUANTITY:30 TABLET(S);?
     Route: 048
  5. 81 ASPIRIN [Concomitant]
  6. VITAMIN D [Concomitant]
     Active Substance: CHOLECALCIFEROL

REACTIONS (5)
  - Hypothyroidism [None]
  - Drug ineffective [None]
  - Product odour abnormal [None]
  - Product quality issue [None]
  - Condition aggravated [None]

NARRATIVE: CASE EVENT DATE: 20171001
